FAERS Safety Report 11802860 (Version 1)
Quarter: 2015Q4

REPORT INFORMATION
  Report Type: Spontaneous
  Country: US (occurrence: US)
  Receive Date: 20151204
  Receipt Date: 20151204
  Transmission Date: 20160305
  Serious: No
  Sender: FDA-Public Use
  Company Number: US-ELI_LILLY_AND_COMPANY-US201511002449

PATIENT
  Sex: Male

DRUGS (3)
  1. JANUVIA [Concomitant]
     Active Substance: SITAGLIPTIN PHOSPHATE
     Dosage: 100 MG, QD
     Route: 065
  2. INVOKANA [Concomitant]
     Active Substance: CANAGLIFLOZIN
     Dosage: 150 MG, QD
     Route: 065
  3. TRULICITY [Suspect]
     Active Substance: DULAGLUTIDE
     Indication: TYPE 2 DIABETES MELLITUS
     Dosage: 0.75 MG, WEEKLY (1/W)
     Route: 065
     Dates: start: 20151030, end: 20151106

REACTIONS (6)
  - Vomiting [Unknown]
  - Diarrhoea [Not Recovered/Not Resolved]
  - Dry mouth [Unknown]
  - Blood glucose decreased [Not Recovered/Not Resolved]
  - Abdominal pain upper [Unknown]
  - Vision blurred [Unknown]
